FAERS Safety Report 4606826-3 (Version None)
Quarter: 2005Q1

REPORT INFORMATION
  Report Type: 
  Country: None (occurrence: None)
  Receive Date: 20050309
  Receipt Date: 20050228
  Transmission Date: 20050727
  Serious: No
  Sender: FDA-Public Use
  Company Number: USA041286693

PATIENT
  Sex: Male

DRUGS (2)
  1. STRATTERA [Suspect]
     Indication: ATTENTION DEFICIT/HYPERACTIVITY DISORDER
     Dosage: 60 MG DAY
     Dates: start: 20030401, end: 20040401
  2. WELLBUTRIN (BUPROPION HYDROCHLORIDE0 [Concomitant]

REACTIONS (6)
  - ABDOMINAL DISCOMFORT [None]
  - ANOSMIA [None]
  - BILE OUTPUT ABNORMAL [None]
  - HIV INFECTION [None]
  - MALAISE [None]
  - SKIN ODOUR ABNORMAL [None]
